FAERS Safety Report 17360579 (Version 1)
Quarter: 2020Q1

REPORT INFORMATION
  Report Type: Spontaneous
  Country: US (occurrence: US)
  Receive Date: 20200131
  Receipt Date: 20200131
  Transmission Date: 20200409
  Serious: Yes (Hospitalization, Other)
  Sender: FDA-Public Use
  Company Number: None

PATIENT
  Age: 25 Year
  Sex: Female
  Weight: 63 kg

DRUGS (3)
  1. NEXPLANON [Suspect]
     Active Substance: ETONOGESTREL
     Indication: CONTRACEPTION
     Dosage: ?          QUANTITY:1 INJECTION(S);OTHER FREQUENCY:ONCE/3 YEARS;OTHER ROUTE:IMPLANTED UNDER THE SKIN ON THE ARM?
  2. LITHIUM AND TRILEPTAL [Concomitant]
  3. RANATADINE [Concomitant]

REACTIONS (2)
  - Ovarian rupture [None]
  - Ectopic pregnancy [None]

NARRATIVE: CASE EVENT DATE: 20200129
